FAERS Safety Report 16799005 (Version 1)
Quarter: 2019Q3

REPORT INFORMATION
  Report Type: Spontaneous
  Country: US (occurrence: US)
  Receive Date: 20190912
  Receipt Date: 20190912
  Transmission Date: 20191005
  Serious: No
  Sender: FDA-Public Use
  Company Number: US-PFIZER INC-2019389664

PATIENT
  Age: 55 Year
  Sex: Male
  Weight: 52.62 kg

DRUGS (1)
  1. NICOTROL [Suspect]
     Active Substance: NICOTINE
     Indication: SMOKING CESSATION THERAPY
     Dosage: UNK(10 MG CARTRIDGE 4 MG DELIVERED. PUFF LIKE A REGULAR CIGARETTE UNTIL IT USES ITS STRENGTH.)
     Dates: end: 2013

REACTIONS (3)
  - Insomnia [Unknown]
  - Eating disorder [Unknown]
  - Weight decreased [Unknown]
